FAERS Safety Report 9085117 (Version 2)
Quarter: 2013Q1

REPORT INFORMATION
  Report Type: Spontaneous
  Country: GB (occurrence: GB)
  Receive Date: 20130218
  Receipt Date: 20130305
  Transmission Date: 20140127
  Serious: Yes (Hospitalization, Other)
  Sender: FDA-Public Use
  Company Number: PHFR2013GB001184

PATIENT
  Age: 45 Year
  Sex: Male

DRUGS (2)
  1. CLOZARIL [Suspect]
     Indication: SCHIZOPHRENIA
     Dosage: UNK
     Route: 048
     Dates: start: 20010701
  2. CLOZARIL [Suspect]
     Dosage: 250 MG, UNK
     Route: 048
     Dates: start: 2007

REACTIONS (11)
  - Depression [Recovered/Resolved]
  - Sepsis [Recovered/Resolved]
  - Confusional state [Unknown]
  - Thinking abnormal [Unknown]
  - Muscle rigidity [Unknown]
  - Delirium [Recovered/Resolved]
  - Mental impairment [Recovered/Resolved]
  - Blood creatine phosphokinase increased [Unknown]
  - White blood cell count increased [Unknown]
  - Neutrophil count increased [Unknown]
  - C-reactive protein increased [Unknown]
